FAERS Safety Report 9197099 (Version 1)
Quarter: 2013Q1

REPORT INFORMATION
  Report Type: Spontaneous
  Country: US (occurrence: US)
  Receive Date: 20130328
  Receipt Date: 20130328
  Transmission Date: 20140127
  Serious: Yes (Other)
  Sender: FDA-Public Use
  Company Number: US-TEVA-394327USA

PATIENT
  Age: 55 Year
  Sex: Female

DRUGS (3)
  1. ACTIQ [Suspect]
  2. OTHER TYPES OF ANTICONVULSANT (EXCLUDING BARBITURATES) [Suspect]
  3. BENZODIAZEPINES [Suspect]

REACTIONS (1)
  - Suicide attempt [Unknown]
